FAERS Safety Report 11008266 (Version 1)
Quarter: 2015Q1

REPORT INFORMATION
  Report Type: Spontaneous
  Country: US (occurrence: None)
  Receive Date: 20150313
  Receipt Date: 20150313
  Transmission Date: 20150721
  Serious: Yes (Other)
  Sender: FDA-Public Use
  Company Number: GNE287669

PATIENT
  Age: 55 Year
  Sex: Female
  Weight: 119.3 kg

DRUGS (18)
  1. FORADIL (FORMOTEROL FUMARATE) [Concomitant]
  2. VERAMYST (FLUTICASONE FUROATE) [Concomitant]
  3. PROVENTIL (SALBUTAMOL) [Concomitant]
  4. PROMETRIUM (PROGESTERONE) [Concomitant]
  5. DEPLIN (CALCIUM MEFOLINATE) [Concomitant]
  6. ALPHA LIPOIC ACID (THIOCTIC ACID) [Concomitant]
  7. NUVIGIL [Concomitant]
     Active Substance: ARMODAFINIL
  8. ALVESCO (CICLESONIDE) [Concomitant]
  9. ADVAIR DISKUS [Concomitant]
     Active Substance: FLUTICASONE PROPIONATE\SALMETEROL XINAFOATE
  10. ESTROPIPATE (ESTROPIPATE) [Concomitant]
  11. ASMANEX [Concomitant]
     Active Substance: MOMETASONE FUROATE
  12. CARDIZEM (DILTIAZEM HYDROCHLORIDE) [Concomitant]
  13. SINGULAIR (MONTELUKAST SODIUM) [Concomitant]
  14. XOLAIR [Suspect]
     Active Substance: OMALIZUMAB
     Indication: ASTHMA
     Dosage: 10.8 MG (300 MG. 1.4 WK), SUBCUTANEOUS
     Route: 058
     Dates: start: 200508, end: 20090424
  15. SYNTHROID [Concomitant]
     Active Substance: LEVOTHYROXINE SODIUM
  16. ALBUTEROL/ALBUTEROL SULFATE (SALBUTAMOL/SALBUTAMOL SULFATE) [Concomitant]
  17. VITAMIN D3 (CHOLECALCIFEROL) [Concomitant]
  18. MIRAPEX (PRAMIPEXOLE HYDROCHLORIDE) [Concomitant]

REACTIONS (9)
  - Dyspnoea [None]
  - Blood pressure increased [None]
  - Headache [None]
  - Hypersensitivity [None]
  - Anxiety [None]
  - Palpitations [None]
  - Flushing [None]
  - Sensation of foreign body [None]
  - Throat tightness [None]

NARRATIVE: CASE EVENT DATE: 20090424
